FAERS Safety Report 9333741 (Version 2)
Quarter: 2013Q3

REPORT INFORMATION
  Report Type: Spontaneous
  Country: US (occurrence: US)
  Receive Date: 20130606
  Receipt Date: 20130726
  Transmission Date: 20140515
  Serious: Yes (Other)
  Sender: FDA-Public Use
  Company Number: US-MYLANLABS-2013S1011691

PATIENT
  Age: 71 Year
  Sex: Female

DRUGS (1)
  1. ZOLPIDEM TARTRATE TABLETS [Suspect]
     Indication: INSOMNIA
     Dosage: CAN TAKE AN ADDITIONAL 1/2 TABLET AS NEEDED
     Route: 048
     Dates: start: 20130503, end: 20130503

REACTIONS (8)
  - Loss of control of legs [Recovered/Resolved]
  - Hypoaesthesia eye [Not Recovered/Not Resolved]
  - Hypoaesthesia [Recovering/Resolving]
  - Back pain [Recovered/Resolved]
  - Chest pain [Recovered/Resolved]
  - Wheezing [Recovered/Resolved]
  - Cyanosis [Recovered/Resolved]
  - Blood triglycerides increased [Recovering/Resolving]
